FAERS Safety Report 8910790 (Version 1)
Quarter: 2012Q4

REPORT INFORMATION
  Report Type: Spontaneous
  Country: GB (occurrence: None)
  Receive Date: 20121113
  Receipt Date: 20121113
  Transmission Date: 20130627
  Serious: Yes (Other)
  Sender: FDA-Public Use
  Company Number: GER/UKI/12/0026584

PATIENT
  Age: 41 Year
  Sex: Male

DRUGS (1)
  1. FLUOXETINE [Suspect]
     Indication: DEPRESSION
     Dosage: 20 mg,  1 in 1 D, Oral
     Route: 048

REACTIONS (5)
  - Memory impairment [None]
  - Insomnia [None]
  - Pruritus generalised [None]
  - Feeling hot [None]
  - Condition aggravated [None]
